FAERS Safety Report 7936418-X (Version None)
Quarter: 2011Q4

REPORT INFORMATION
  Report Type: 
  Country: None (occurrence: None)
  Receive Date: 20111123
  Receipt Date: 20111118
  Transmission Date: 20120403
  Serious: Yes (Other)
  Sender: FDA-Public Use
  Company Number: US-PFIZER INC-2011270779

PATIENT
  Sex: Male
  Weight: 104 kg

DRUGS (2)
  1. CHANTIX [Suspect]
     Indication: TOBACCO USER
     Dosage: 0.5 MG, DAILY
     Route: 048
     Dates: start: 20111009, end: 20111011
  2. CHANTIX [Suspect]
     Dosage: 0.5 MG, 2X/DAY
     Route: 048
     Dates: start: 20111012

REACTIONS (4)
  - SURGERY [None]
  - DYSPNOEA [None]
  - SINUS OPERATION [None]
  - HYPERTENSION [None]
